FAERS Safety Report 10404807 (Version 1)
Quarter: 2014Q3

REPORT INFORMATION
  Report Type: Spontaneous
  Country: CN (occurrence: CN)
  Receive Date: 20140825
  Receipt Date: 20140825
  Transmission Date: 20150326
  Serious: Yes (Other)
  Sender: FDA-Public Use
  Company Number: CN-ROCHE-1451583

PATIENT
  Age: 74 Year
  Sex: Female

DRUGS (3)
  1. XELODA [Suspect]
     Active Substance: CAPECITABINE
     Route: 048
     Dates: start: 20140725
  2. XELODA [Suspect]
     Active Substance: CAPECITABINE
     Indication: HER-2 POSITIVE BREAST CANCER
     Route: 048
     Dates: start: 200904, end: 201004
  3. HERCEPTIN [Suspect]
     Active Substance: TRASTUZUMAB
     Indication: HER-2 POSITIVE BREAST CANCER
     Dosage: INITIAL DOSAGE WAS 480MG
     Route: 041
     Dates: start: 20140729

REACTIONS (9)
  - Urinary tract infection [Recovered/Resolved]
  - White blood cell count increased [Unknown]
  - Breast cancer recurrent [Unknown]
  - Erythema [Recovered/Resolved]
  - Nail discolouration [Recovered/Resolved]
  - Pain of skin [Recovered/Resolved]
  - Chills [Recovered/Resolved]
  - Skin fissures [Recovered/Resolved]
  - Pyrexia [Recovered/Resolved]

NARRATIVE: CASE EVENT DATE: 20140729
